FAERS Safety Report 11993102 (Version 1)
Quarter: 2016Q1

REPORT INFORMATION
  Report Type: Spontaneous
  Country: US (occurrence: None)
  Receive Date: 20160202
  Receipt Date: 20160202
  Transmission Date: 20160526
  Serious: Yes (Life-Threatening, Hospitalization, Disabling, Other)
  Sender: FDA-Public Use
  Company Number: None

PATIENT
  Age: 48 Year
  Sex: Female

DRUGS (1)
  1. ADIPEX-P [Suspect]
     Active Substance: PHENTERMINE HYDROCHLORIDE
     Indication: WEIGHT CONTROL
     Dosage: ADIPEX, ONCE DAILY, TAKEN BY MOUTH
     Dates: start: 20090603, end: 20110603

REACTIONS (4)
  - Family stress [None]
  - Contraindicated drug administered [None]
  - Incorrect drug administration duration [None]
  - Cerebrovascular accident [None]

NARRATIVE: CASE EVENT DATE: 20110503
